FAERS Safety Report 11053854 (Version 1)
Quarter: 2015Q2

REPORT INFORMATION
  Report Type: Spontaneous
  Country: JP (occurrence: JP)
  Receive Date: 20150421
  Receipt Date: 20150421
  Transmission Date: 20150821
  Serious: Yes (Other)
  Sender: FDA-Public Use
  Company Number: ALJP2015JP000555

PATIENT

DRUGS (3)
  1. NEVANAC [Suspect]
     Active Substance: NEPAFENAC
     Dosage: 1 DF, PRN
     Route: 047
     Dates: start: 20150220, end: 20150412
  2. CRAVIT [Concomitant]
     Active Substance: LEVOFLOXACIN
     Dosage: 1 DF, PRN
     Route: 065
     Dates: start: 20150220, end: 20150412
  3. FLUMETHOLON [Concomitant]
     Active Substance: FLUOROMETHOLONE
     Dosage: 1 DF, PRN
     Route: 047
     Dates: start: 20150220, end: 20150412

REACTIONS (1)
  - Endophthalmitis [Unknown]

NARRATIVE: CASE EVENT DATE: 20150319
